FAERS Safety Report 24793882 (Version 2)
Quarter: 2025Q3

REPORT INFORMATION
  Report Type: Spontaneous
  Country: US (occurrence: US)
  Receive Date: 20241231
  Receipt Date: 20250810
  Transmission Date: 20251020
  Serious: No
  Sender: ALEXION PHARMACEUTICALS
  Company Number: US-AstraZeneca-CH-00775913AP

PATIENT
  Sex: Female

DRUGS (1)
  1. SYMLIN [Suspect]
     Active Substance: PRAMLINTIDE ACETATE
     Route: 065

REACTIONS (3)
  - Oropharyngeal discomfort [Unknown]
  - Vision blurred [Unknown]
  - Weight increased [Unknown]
